FAERS Safety Report 5879205-9 (Version None)
Quarter: 2008Q3

REPORT INFORMATION
  Report Type: 
  Country: None (occurrence: None)
  Receive Date: 20080912
  Receipt Date: 20080904
  Transmission Date: 20090109
  Serious: Yes (Hospitalization, Other)
  Sender: FDA-Public Use
  Company Number: US-ROCHE-584720

PATIENT
  Sex: Female

DRUGS (3)
  1. PEG-INTERFERON A-2A (RO 25-8310) [Suspect]
     Route: 065
     Dates: start: 20080530
  2. RIBAVIRIN [Suspect]
     Route: 065
     Dates: start: 20080530
  3. RIBAVIRIN [Suspect]
     Route: 065
     Dates: start: 20080725

REACTIONS (3)
  - RED BLOOD CELL COUNT DECREASED [None]
  - THROMBOSIS [None]
  - WHITE BLOOD CELL COUNT DECREASED [None]
